FAERS Safety Report 21861246 (Version 2)
Quarter: 2023Q1

REPORT INFORMATION
  Report Type: Spontaneous
  Country: IT (occurrence: IT)
  Receive Date: 20230113
  Receipt Date: 20230206
  Transmission Date: 20230418
  Serious: Yes (Hospitalization, Other)
  Sender: FDA-Public Use
  Company Number: IT-AMGEN-ITASP2023003590

PATIENT

DRUGS (2)
  1. EVOLOCUMAB [Suspect]
     Active Substance: EVOLOCUMAB
     Indication: Arteriosclerosis
     Dosage: UNK
     Route: 065
  2. EVOLOCUMAB [Suspect]
     Active Substance: EVOLOCUMAB
     Indication: Type IIa hyperlipidaemia

REACTIONS (11)
  - Acute coronary syndrome [Unknown]
  - Cerebrovascular accident [Unknown]
  - Cardiac failure [Unknown]
  - Chronic kidney disease [Unknown]
  - Cerebrovascular insufficiency [Unknown]
  - Cardiovascular disorder [Unknown]
  - Drug intolerance [Unknown]
  - Treatment noncompliance [Unknown]
  - Low density lipoprotein decreased [Unknown]
  - Adverse drug reaction [Unknown]
  - Injection site reaction [Unknown]
